APPROVED DRUG PRODUCT: SOLIFENACIN SUCCINATE
Active Ingredient: SOLIFENACIN SUCCINATE
Strength: 10MG
Dosage Form/Route: TABLET;ORAL
Application: A207721 | Product #002
Applicant: ZYDUS PHARMACEUTICALS USA INC
Approved: Oct 19, 2020 | RLD: No | RS: No | Type: DISCN